FAERS Safety Report 23873526 (Version 1)
Quarter: 2024Q2

REPORT INFORMATION
  Report Type: Spontaneous
  Country: US (occurrence: US)
  Receive Date: 20240520
  Receipt Date: 20240520
  Transmission Date: 20240715
  Serious: Yes (Other)
  Sender: FDA-Public Use
  Company Number: US-TAKEDA-2024TUS046119

PATIENT
  Sex: Female

DRUGS (3)
  1. MYDAYIS [Suspect]
     Active Substance: AMPHETAMINE ASPARTATE\AMPHETAMINE SULFATE\DEXTROAMPHETAMINE SACCHARATE\DEXTROAMPHETAMINE SULFATE
     Indication: Product used for unknown indication
     Dosage: UNK
     Route: 065
  2. DEXTROAMPHET SACCHARAT, AMPHET ASPARTATE, DEXTROAMPHET SULFATE AND AMP [Suspect]
     Active Substance: AMPHETAMINE ASPARTATE\AMPHETAMINE ASPARTATE MONOHYDRATE\AMPHETAMINE SULFATE\DEXTROAMPHETAMINE SACCHA
     Indication: Product used for unknown indication
     Dosage: UNK
     Route: 065
  3. DEXEDRINE [Concomitant]
     Active Substance: DEXTROAMPHETAMINE SULFATE
     Dosage: 30 MILLIGRAM
     Route: 065

REACTIONS (14)
  - Dementia [Unknown]
  - Stress [Unknown]
  - Therapeutic product effect variable [Unknown]
  - Brain fog [Unknown]
  - Insurance issue [Unknown]
  - Sedation [Unknown]
  - Head discomfort [Unknown]
  - Hypersomnia [Unknown]
  - Drug tolerance [Unknown]
  - Insomnia [Unknown]
  - Irritability [Unknown]
  - Headache [Unknown]
  - Somnolence [Unknown]
  - Fatigue [Unknown]
